FAERS Safety Report 8269138-5 (Version None)
Quarter: 2012Q2

REPORT INFORMATION
  Report Type: 
  Country: None (occurrence: None)
  Receive Date: 20120409
  Receipt Date: 20120330
  Transmission Date: 20120825
  Serious: Yes (Death, Hospitalization)
  Sender: FDA-Public Use
  Company Number: GB-TEVA-331071ISR

PATIENT
  Age: 58 Year
  Sex: Male
  Weight: 52 kg

DRUGS (11)
  1. SIMVASTATIN [Suspect]
     Indication: BLOOD CHOLESTEROL INCREASED
     Route: 048
     Dates: end: 20120303
  2. LOPERAMIDE [Concomitant]
     Indication: DIARRHOEA
     Dates: end: 20120318
  3. ACETAMINOPHEN AND CODEINE PHOSPHATE [Concomitant]
     Indication: ANALGESIC THERAPY
  4. NOVOMIX [Concomitant]
     Indication: DIABETES MELLITUS
     Dosage: NOVOMIX 30. 22/10UNITS.
     Route: 058
  5. CYCLOSPORINE [Concomitant]
     Indication: RENAL TRANSPLANT
     Dosage: INDICATION - POST RENAL TRANSPLANT IMMUNOSUPRESSION.
     Route: 048
     Dates: end: 20120318
  6. E-45 [Concomitant]
     Route: 061
  7. LEVOTHYROXINE SODIUM [Concomitant]
     Indication: HYPOTHYROIDISM
     Route: 048
     Dates: end: 20120318
  8. ASPIRIN [Concomitant]
     Indication: MYOCARDIAL ISCHAEMIA
     Route: 048
     Dates: end: 20120318
  9. FERROUS FUMARATE [Concomitant]
     Indication: ANAEMIA
     Dosage: IN THE MORNING
     Dates: end: 20120318
  10. FUROSEMIDE [Concomitant]
     Indication: CARDIAC FAILURE CONGESTIVE
     Dosage: IN THE MORNING.
     Dates: end: 20120318
  11. DOMPERIDONE [Concomitant]
     Indication: MALAISE
     Dates: end: 20120318

REACTIONS (3)
  - RHABDOMYOLYSIS [None]
  - HYPERKALAEMIA [None]
  - TRANSPLANT FAILURE [None]
